FAERS Safety Report 7780829-2 (Version None)
Quarter: 2011Q3

REPORT INFORMATION
  Report Type: 
  Country: None (occurrence: None)
  Receive Date: 20110927
  Receipt Date: 20110923
  Transmission Date: 20111222
  Serious: Yes (Hospitalization)
  Sender: FDA-Public Use
  Company Number: CA-ABBOTT-11P-028-0848133-00

PATIENT
  Sex: Female
  Weight: 57.204 kg

DRUGS (2)
  1. PREDNISONE [Concomitant]
     Indication: CROHN'S DISEASE
     Route: 048
     Dates: start: 20110301
  2. HUMIRA [Suspect]
     Indication: CROHN'S DISEASE
     Route: 058
     Dates: start: 20110616, end: 20110630

REACTIONS (5)
  - ABDOMINAL MASS [None]
  - ABSCESS [None]
  - INTESTINAL RESECTION [None]
  - ABDOMINAL ABSCESS [None]
  - ABDOMINAL PAIN [None]
